FAERS Safety Report 6136387-1 (Version None)
Quarter: 2009Q1

REPORT INFORMATION
  Report Type: 
  Country: None (occurrence: None)
  Receive Date: 20090325
  Receipt Date: 20090312
  Transmission Date: 20090719
  Serious: No
  Sender: FDA-Public Use
  Company Number: C-09-0061-W

PATIENT
  Age: 61 Year
  Sex: Male

DRUGS (1)
  1. RANITIDINE [Suspect]
     Indication: DYSPEPSIA
     Dosage: 150MG ONCE DAILY/ORAL
     Route: 048
     Dates: start: 20090216

REACTIONS (1)
  - NAUSEA [None]
